FAERS Safety Report 5246174-4 (Version None)
Quarter: 2007Q1

REPORT INFORMATION
  Report Type: 
  Country: None (occurrence: None)
  Receive Date: 20070220
  Receipt Date: 20070209
  Transmission Date: 20070707
  Serious: Yes (Other)
  Sender: FDA-Public Use
  Company Number: GXKR2007ES01569

PATIENT
  Age: 50 Year
  Sex: Female

DRUGS (1)
  1. ASPIRIN [Suspect]
     Indication: PYREXIA

REACTIONS (6)
  - CONDITION AGGRAVATED [None]
  - DENGUE FEVER [None]
  - EPISTAXIS [None]
  - HAEMORRHAGE [None]
  - PETECHIAE [None]
  - PURPURA [None]
